APPROVED DRUG PRODUCT: VERAPAMIL HYDROCHLORIDE
Active Ingredient: VERAPAMIL HYDROCHLORIDE
Strength: 40MG
Dosage Form/Route: TABLET;ORAL
Application: A072751 | Product #001
Applicant: PLIVA INC
Approved: Feb 23, 1996 | RLD: No | RS: No | Type: DISCN